FAERS Safety Report 11179780 (Version 1)
Quarter: 2015Q2

REPORT INFORMATION
  Report Type: Spontaneous
  Country: US (occurrence: US)
  Receive Date: 20150611
  Receipt Date: 20150611
  Transmission Date: 20150821
  Serious: Yes (Other)
  Sender: FDA-Public Use
  Company Number: US-AUROBINDO-AUR-APL-2015-01195

PATIENT
  Age: 62 Year
  Sex: Male

DRUGS (3)
  1. CLONAZEPAM. [Suspect]
     Active Substance: CLONAZEPAM
     Dosage: 0.5 UNK, UNK
     Route: 065
  2. PRAMIPEXOLE [Suspect]
     Active Substance: PRAMIPEXOLE
     Indication: PARKINSON^S DISEASE
     Dosage: 2.5 MG, UNK
     Route: 065
  3. CLONAZEPAM. [Suspect]
     Active Substance: CLONAZEPAM
     Indication: PRODUCT USED FOR UNKNOWN INDICATION
     Dosage: 1 MG, UNK
     Route: 065

REACTIONS (11)
  - Repetitive speech [Recovered/Resolved]
  - Amnesia [Recovered/Resolved]
  - Mental disability [Recovered/Resolved]
  - Visual impairment [Recovered/Resolved]
  - Tremor [Recovered/Resolved]
  - Apathy [Recovered/Resolved]
  - Delusion [Recovered/Resolved]
  - Bradykinesia [Recovered/Resolved]
  - Stereotypy [Recovered/Resolved]
  - Gait disturbance [Recovered/Resolved]
  - Abnormal behaviour [Recovered/Resolved]
